FAERS Safety Report 9443554 (Version 1)
Quarter: 2013Q3

REPORT INFORMATION
  Report Type: Spontaneous
  Country: None (occurrence: US)
  Receive Date: 20130806
  Receipt Date: 20130806
  Transmission Date: 20140515
  Serious: No
  Sender: FDA-Public Use
  Company Number: US-BAXTER-2011BH021990

PATIENT
  Sex: 0

DRUGS (2)
  1. FLUCONAZOLE_FLUCONAZOLE 2.00 MG/ML_SOLUTION FOR INFUSION_BAG, NON PVC [Suspect]
     Indication: PRODUCT USED FOR UNKNOWN INDICATION
     Route: 065
  2. CIPROFLOXACIN [Suspect]
     Indication: PRODUCT USED FOR UNKNOWN INDICATION
     Route: 065

REACTIONS (1)
  - Product label confusion [Unknown]
